FAERS Safety Report 4389174-9 (Version None)
Quarter: 2004Q2

REPORT INFORMATION
  Report Type: 
  Country: None (occurrence: None)
  Receive Date: 20040628
  Receipt Date: 20040610
  Transmission Date: 20050107
  Serious: Yes (Other)
  Sender: FDA-Public Use
  Company Number: S04-IRL-02365-01

PATIENT
  Age: 59 Year
  Sex: Male

DRUGS (2)
  1. LEXAPRO [Suspect]
     Indication: DEPRESSION
     Dosage: 40 MG QD PO
     Route: 048
     Dates: end: 20040521
  2. ZYPREXA [Concomitant]

REACTIONS (3)
  - DEEP VEIN THROMBOSIS [None]
  - DISEASE RECURRENCE [None]
  - OVERDOSE [None]
